FAERS Safety Report 25057329 (Version 1)
Quarter: 2025Q1

REPORT INFORMATION
  Report Type: Spontaneous
  Country: IT (occurrence: IT)
  Receive Date: 20250310
  Receipt Date: 20250310
  Transmission Date: 20250408
  Serious: Yes (Life-Threatening)
  Sender: BIOGEN
  Company Number: None

PATIENT
  Age: 36 Year
  Sex: Male
  Weight: 75 kg

DRUGS (1)
  1. TECFIDERA [Suspect]
     Active Substance: DIMETHYL FUMARATE
     Indication: Relapsing-remitting multiple sclerosis
     Dosage: DIMETHYLFUMARATE 240 MILLIGRAMS TWICE A DAY, TAKEN ORALLY
     Route: 050
     Dates: start: 20201020, end: 20250219

REACTIONS (1)
  - Cerebral venous thrombosis [Not Recovered/Not Resolved]

NARRATIVE: CASE EVENT DATE: 20250216
